FAERS Safety Report 19610354 (Version 1)
Quarter: 2021Q3

REPORT INFORMATION
  Report Type: Spontaneous
  Country: US (occurrence: US)
  Receive Date: 20210726
  Receipt Date: 20210726
  Transmission Date: 20211014
  Serious: Yes (Other)
  Sender: FDA-Public Use
  Company Number: US-GLAXOSMITHKLINE-USCH2021047680

PATIENT

DRUGS (1)
  1. NICORETTE [Suspect]
     Active Substance: NICOTINE
     Indication: SMOKING CESSATION THERAPY
     Dosage: UNK

REACTIONS (17)
  - Poisoning [Unknown]
  - Breath odour [Unknown]
  - Dependence [Unknown]
  - Obsessive thoughts [Unknown]
  - Palpitations [Unknown]
  - Oral disorder [Unknown]
  - Heart rate irregular [Unknown]
  - Pain [Unknown]
  - Joint injury [Unknown]
  - Impaired healing [Unknown]
  - Nightmare [Unknown]
  - Skin disorder [Unknown]
  - Dizziness [Unknown]
  - Illness [Unknown]
  - Dental plaque [Unknown]
  - Gingival recession [Unknown]
  - Wrong technique in product usage process [Unknown]
